FAERS Safety Report 9039499 (Version 1)
Quarter: 2013Q1

REPORT INFORMATION
  Report Type: Spontaneous
  Country: US (occurrence: None)
  Receive Date: 20130123
  Receipt Date: 20130123
  Transmission Date: 20140127
  Serious: No
  Sender: FDA-Public Use
  Company Number: None

PATIENT
  Sex: Male
  Weight: 107.05 kg

DRUGS (1)
  1. SUMATRIPTAN SUCCINATE [Suspect]
     Dosage: 100 MG  PRN  ORAL?N/A - 2 WKS DURATION
     Route: 048

REACTIONS (4)
  - Nausea [None]
  - Dizziness [None]
  - Vomiting [None]
  - Dizziness [None]
